FAERS Safety Report 25927399 (Version 2)
Quarter: 2025Q4

REPORT INFORMATION
  Report Type: Report from Study
  Country: CN (occurrence: CN)
  Receive Date: 20251015
  Receipt Date: 20251231
  Transmission Date: 20260119
  Serious: Yes (Hospitalization, Other)
  Sender: JOHNSON AND JOHNSON
  Company Number: CN-JNJFOC-20250922962

PATIENT
  Age: 53 Year
  Sex: Female
  Weight: 54 kg

DRUGS (52)
  1. DARATUMUMAB [Suspect]
     Active Substance: DARATUMUMAB
     Indication: Plasma cell myeloma refractory
     Dosage: 16MG/KG
     Route: 041
     Dates: start: 20250423
  2. DARATUMUMAB [Suspect]
     Active Substance: DARATUMUMAB
     Dosage: 16MG/KG
     Route: 041
     Dates: start: 20250521, end: 20250521
  3. DARATUMUMAB [Suspect]
     Active Substance: DARATUMUMAB
     Dosage: 16MG/KG
     Route: 041
     Dates: start: 20250528, end: 20250528
  4. DARATUMUMAB [Suspect]
     Active Substance: DARATUMUMAB
     Dosage: 16MG/KG
     Route: 041
     Dates: start: 20250604, end: 20250604
  5. DARATUMUMAB [Suspect]
     Active Substance: DARATUMUMAB
     Dosage: 16MG/KG
     Route: 041
     Dates: start: 20250618, end: 20250618
  6. DARATUMUMAB [Suspect]
     Active Substance: DARATUMUMAB
     Dosage: 16MG/KG
     Route: 041
     Dates: start: 20250702, end: 20250702
  7. DARATUMUMAB [Suspect]
     Active Substance: DARATUMUMAB
     Dosage: 16MG/KG
     Route: 041
     Dates: start: 20250716, end: 20250716
  8. DARATUMUMAB [Suspect]
     Active Substance: DARATUMUMAB
     Dosage: 16MG/KG
     Route: 041
     Dates: start: 20250730, end: 20250730
  9. DARATUMUMAB [Suspect]
     Active Substance: DARATUMUMAB
     Dosage: 16MG/KG
     Route: 041
     Dates: start: 20250813, end: 20250813
  10. DARATUMUMAB [Suspect]
     Active Substance: DARATUMUMAB
     Dosage: 16MG/KG
     Route: 041
     Dates: start: 20250827, end: 20250827
  11. DEXAMETHASONE SODIUM PHOSPHATE [Suspect]
     Active Substance: DEXAMETHASONE SODIUM PHOSPHATE
     Indication: Plasma cell myeloma refractory
     Route: 041
     Dates: start: 20250423
  12. DEXAMETHASONE SODIUM PHOSPHATE [Suspect]
     Active Substance: DEXAMETHASONE SODIUM PHOSPHATE
     Route: 041
     Dates: start: 20250424, end: 20250424
  13. DEXAMETHASONE SODIUM PHOSPHATE [Suspect]
     Active Substance: DEXAMETHASONE SODIUM PHOSPHATE
     Route: 041
     Dates: start: 20250521, end: 20250521
  14. DEXAMETHASONE SODIUM PHOSPHATE [Suspect]
     Active Substance: DEXAMETHASONE SODIUM PHOSPHATE
     Route: 041
     Dates: start: 20250522, end: 20250522
  15. DEXAMETHASONE SODIUM PHOSPHATE [Suspect]
     Active Substance: DEXAMETHASONE SODIUM PHOSPHATE
     Route: 041
     Dates: start: 20250528, end: 20250528
  16. DEXAMETHASONE SODIUM PHOSPHATE [Suspect]
     Active Substance: DEXAMETHASONE SODIUM PHOSPHATE
     Route: 041
     Dates: start: 20250529, end: 20250529
  17. DEXAMETHASONE SODIUM PHOSPHATE [Suspect]
     Active Substance: DEXAMETHASONE SODIUM PHOSPHATE
     Route: 041
     Dates: start: 20250604, end: 20250604
  18. DEXAMETHASONE SODIUM PHOSPHATE [Suspect]
     Active Substance: DEXAMETHASONE SODIUM PHOSPHATE
     Route: 041
     Dates: start: 20250605, end: 20250605
  19. DEXAMETHASONE SODIUM PHOSPHATE [Suspect]
     Active Substance: DEXAMETHASONE SODIUM PHOSPHATE
     Route: 041
     Dates: start: 20250618, end: 20250618
  20. DEXAMETHASONE SODIUM PHOSPHATE [Suspect]
     Active Substance: DEXAMETHASONE SODIUM PHOSPHATE
     Route: 041
     Dates: start: 20250702, end: 20250702
  21. DEXAMETHASONE SODIUM PHOSPHATE [Suspect]
     Active Substance: DEXAMETHASONE SODIUM PHOSPHATE
     Route: 041
     Dates: start: 20250716, end: 20250716
  22. DEXAMETHASONE SODIUM PHOSPHATE [Suspect]
     Active Substance: DEXAMETHASONE SODIUM PHOSPHATE
     Route: 041
     Dates: start: 20250730, end: 20250730
  23. DEXAMETHASONE SODIUM PHOSPHATE [Suspect]
     Active Substance: DEXAMETHASONE SODIUM PHOSPHATE
     Route: 041
     Dates: start: 20250813, end: 20250813
  24. DEXAMETHASONE SODIUM PHOSPHATE [Suspect]
     Active Substance: DEXAMETHASONE SODIUM PHOSPHATE
     Route: 041
     Dates: start: 20250827, end: 20250827
  25. DEXAMETHASONE [Suspect]
     Active Substance: DEXAMETHASONE
     Indication: Plasma cell myeloma refractory
     Dates: start: 20250619
  26. DEXAMETHASONE [Suspect]
     Active Substance: DEXAMETHASONE
     Dates: start: 20250625, end: 20250626
  27. DEXAMETHASONE [Suspect]
     Active Substance: DEXAMETHASONE
     Dates: start: 20250703, end: 20250703
  28. DEXAMETHASONE [Suspect]
     Active Substance: DEXAMETHASONE
     Dates: start: 20250709, end: 20250710
  29. DEXAMETHASONE [Suspect]
     Active Substance: DEXAMETHASONE
     Dates: start: 20250717, end: 20250717
  30. DEXAMETHASONE [Suspect]
     Active Substance: DEXAMETHASONE
     Dates: start: 20250723, end: 20250724
  31. DEXAMETHASONE [Suspect]
     Active Substance: DEXAMETHASONE
     Dates: start: 20250731, end: 20250731
  32. DEXAMETHASONE [Suspect]
     Active Substance: DEXAMETHASONE
     Dates: start: 20250814, end: 20250814
  33. DEXAMETHASONE [Suspect]
     Active Substance: DEXAMETHASONE
     Dates: start: 20250828, end: 20250828
  34. POMALIDOMIDE [Suspect]
     Active Substance: POMALIDOMIDE
     Indication: Plasma cell myeloma refractory
     Dates: start: 20250423
  35. POMALIDOMIDE [Suspect]
     Active Substance: POMALIDOMIDE
     Dates: start: 20250716, end: 20250805
  36. POMALIDOMIDE [Suspect]
     Active Substance: POMALIDOMIDE
     Dates: start: 20250521, end: 20250607
  37. POMALIDOMIDE [Suspect]
     Active Substance: POMALIDOMIDE
     Dates: start: 20250813, end: 20250829
  38. POMALIDOMIDE [Suspect]
     Active Substance: POMALIDOMIDE
     Dates: start: 20250618, end: 20250708
  39. POTASSIUM CHLORIDE [Concomitant]
     Active Substance: POTASSIUM CHLORIDE
     Indication: Product used for unknown indication
  40. ATORVASTATIN CALCIUM [Concomitant]
     Active Substance: ATORVASTATIN CALCIUM
     Indication: Product used for unknown indication
  41. PHENOBARBITAL SODIUM [Concomitant]
     Active Substance: PHENOBARBITAL SODIUM
     Indication: Sedation
     Dosage: LUMINAL 100 MG
     Route: 030
  42. HALOPERIDOL [Concomitant]
     Active Substance: HALOPERIDOL
     Indication: Sedation
     Route: 030
  43. SODIUM [Concomitant]
     Active Substance: SODIUM
     Indication: Electrolyte substitution therapy
  44. POTASSIUM [Concomitant]
     Active Substance: POTASSIUM
     Indication: Electrolyte substitution therapy
  45. MAGNESIUM [Concomitant]
     Active Substance: MAGNESIUM
     Indication: Electrolyte substitution therapy
  46. CALCIUM [Concomitant]
     Active Substance: CALCIUM
     Indication: Electrolyte substitution therapy
  47. DEXTROSE [Concomitant]
     Active Substance: DEXTROSE MONOHYDRATE
     Indication: Electrolyte substitution therapy
     Route: 042
     Dates: start: 20250906
  48. AMINO ACIDS, SOURCE UNSPECIFIED [Concomitant]
     Active Substance: AMINO ACIDS, SOURCE UNSPECIFIED
     Indication: Nutritional supplementation
     Dosage: 1 *AA-IL) (8.50/0250 ML) (250 ML, QD, INTRAVENOUS DRIP
     Route: 041
     Dates: start: 20250914
  49. ILAPRAZOLE [Concomitant]
     Active Substance: ILAPRAZOLE
     Indication: Gastrointestinal disorder therapy
     Route: 042
  50. SOLUVIT [ASCORBIC ACID;BIOTIN;CALCIUM PANTOTHENATE;CYANOCOBALAMIN;FOLI [Concomitant]
     Indication: Fluid replacement
     Dosage: 1 VIAL
     Route: 041
  51. POTASSIUM CHLORIDE [Concomitant]
     Active Substance: POTASSIUM CHLORIDE
     Indication: Mineral supplementation
     Route: 041
  52. HALOPERIDOL [Concomitant]
     Active Substance: HALOPERIDOL
     Indication: Sedative therapy
     Route: 030

REACTIONS (9)
  - Pyrexia [Not Recovered/Not Resolved]
  - Intracranial infection [Recovering/Resolving]
  - Pericardial effusion [Unknown]
  - Hypocalcaemia [Recovered/Resolved]
  - Epilepsy [Unknown]
  - Brucellosis [Unknown]
  - Hypogammaglobulinaemia [Unknown]
  - Hepatic function abnormal [Recovered/Resolved]
  - Hypoaesthesia [Unknown]

NARRATIVE: CASE EVENT DATE: 20250830
